FAERS Safety Report 9335091 (Version 1)
Quarter: 2013Q2

REPORT INFORMATION
  Report Type: Spontaneous
  Country: CN (occurrence: CN)
  Receive Date: 20130606
  Receipt Date: 20130606
  Transmission Date: 20140414
  Serious: Yes (Other)
  Sender: FDA-Public Use
  Company Number: CN-ASTELLAS-2013JP006314

PATIENT
  Age: 11 Year
  Sex: Male

DRUGS (4)
  1. PROTOPIC [Suspect]
     Indication: DERMATITIS ATOPIC
     Dosage: UNK
     Route: 061
     Dates: start: 2012
  2. PROTOPIC [Suspect]
     Route: 061
  3. CUTIVATE [Suspect]
     Indication: DERMATITIS ATOPIC
     Dosage: UNK
     Route: 061
     Dates: start: 2012
  4. WINONA [Concomitant]
     Indication: DERMATITIS ATOPIC
     Dosage: UNK
     Route: 061
     Dates: start: 2012

REACTIONS (1)
  - Lymphocytic leukaemia [Not Recovered/Not Resolved]
